FAERS Safety Report 4862565-5 (Version None)
Quarter: 2005Q4

REPORT INFORMATION
  Report Type: 
  Country: None (occurrence: None)
  Receive Date: 20051221
  Receipt Date: 20051214
  Transmission Date: 20060501
  Serious: Yes (Hospitalization)
  Sender: FDA-Public Use
  Company Number: FR-GLAXOSMITHKLINE-B0403996A

PATIENT
  Age: 39 Year
  Sex: Male

DRUGS (3)
  1. ZIAGEN [Suspect]
     Indication: HIV INFECTION
     Route: 048
     Dates: start: 20050301, end: 20050511
  2. EPIVIR [Suspect]
     Indication: HIV INFECTION
     Route: 048
     Dates: start: 20030615
  3. KALETRA [Suspect]
     Indication: HIV INFECTION
     Route: 048
     Dates: end: 20050512

REACTIONS (5)
  - CIRCULATORY COLLAPSE [None]
  - DIARRHOEA [None]
  - DRUG HYPERSENSITIVITY [None]
  - FACIAL PALSY [None]
  - PYREXIA [None]
